FAERS Safety Report 5736871-6 (Version None)
Quarter: 2008Q2

REPORT INFORMATION
  Report Type: 
  Country: None (occurrence: None)
  Receive Date: 20080508
  Receipt Date: 20080213
  Transmission Date: 20081010
  Serious: Yes (Hospitalization, Other)
  Sender: FDA-Public Use
  Company Number: 80644

PATIENT
  Age: 81 Year
  Sex: Male
  Weight: 70 kg

DRUGS (7)
  1. NAPROXEN [Suspect]
     Dosage: 500 MG/ 2/1DAY/ ORAL
     Route: 048
     Dates: start: 20080121, end: 20080201
  2. ASPIRIN [Concomitant]
  3. CITALOPRAM HYDROBROMIDE [Concomitant]
  4. METFORMIN HCL [Concomitant]
  5. MIRTAZAPINE [Concomitant]
  6. RAMIPRIL [Concomitant]
  7. SIMVASTATIN [Concomitant]

REACTIONS (1)
  - RENAL IMPAIRMENT [None]
